FAERS Safety Report 24631041 (Version 1)
Quarter: 2024Q4

REPORT INFORMATION
  Report Type: Report from Study
  Country: US (occurrence: US)
  Receive Date: 20241118
  Receipt Date: 20241118
  Transmission Date: 20250115
  Serious: Yes (Hospitalization, Other)
  Sender: GILEAD
  Company Number: US-GILEAD-2024-0693963

PATIENT
  Sex: Male

DRUGS (19)
  1. AZTREONAM LYSINE [Suspect]
     Active Substance: AZTREONAM LYSINE
     Indication: Tracheostomy
     Dosage: 1 DOSAGE FORM, TID ( FOR 28 DAYS ON, 28 DAYS OFF)
     Route: 055
  2. TOPIRAMATE [Concomitant]
     Active Substance: TOPIRAMATE
  3. FOLIC ACID [Concomitant]
     Active Substance: FOLIC ACID
  4. PULMICORT TURBUHALER [Concomitant]
     Active Substance: BUDESONIDE
  5. NYSTATIN [Concomitant]
     Active Substance: NYSTATIN
  6. BACTROBAN [Concomitant]
     Active Substance: BACTROBAN
  7. ALBUTEROL SULFATE [Concomitant]
     Active Substance: ALBUTEROL SULFATE
  8. ZYRTEC [Concomitant]
     Active Substance: CETIRIZINE HYDROCHLORIDE
  9. ONFI [Concomitant]
     Active Substance: CLOBAZAM
  10. NEXIUM I.V. [Concomitant]
     Active Substance: ESOMEPRAZOLE SODIUM
  11. TETRABENAZINE [Concomitant]
     Active Substance: TETRABENAZINE
  12. PATANOL [Concomitant]
     Active Substance: OLOPATADINE HYDROCHLORIDE
  13. KLONOPIN [Concomitant]
     Active Substance: CLONAZEPAM
  14. TYLENOL [Concomitant]
     Active Substance: ACETAMINOPHEN
  15. VANCOMYCIN [Concomitant]
     Active Substance: VANCOMYCIN
  16. FERROUS SULFATE [Concomitant]
     Active Substance: FERROUS SULFATE
  17. MELATONIN [Concomitant]
     Active Substance: MELATONIN
  18. FYCOMPA [Concomitant]
     Active Substance: PERAMPANEL
  19. CARAFATE [Concomitant]
     Active Substance: SUCRALFATE

REACTIONS (2)
  - Tracheostomy infection [Unknown]
  - Off label use [Not Recovered/Not Resolved]
